FAERS Safety Report 14243261 (Version 1)
Quarter: 2017Q4

REPORT INFORMATION
  Report Type: Spontaneous
  Country: DE (occurrence: DE)
  Receive Date: 20171201
  Receipt Date: 20171201
  Transmission Date: 20180321
  Serious: Yes (Disabling, Other)
  Sender: FDA-Public Use
  Company Number: DE-TEVA-2017-DE-826009

PATIENT
  Sex: Male

DRUGS (9)
  1. TAVOR (LORAZEPAM) [Concomitant]
     Active Substance: LORAZEPAM
     Dosage: 1 MILLIGRAM DAILY;
     Dates: end: 20090903
  2. RAMIPRIL COMP-CT [Concomitant]
     Dosage: 1 MILLIGRAM DAILY;
  3. DOXEPIN [Suspect]
     Active Substance: DOXEPIN
     Dosage: 75 MILLIGRAM DAILY;
  4. PANTOZOL [Concomitant]
     Active Substance: PANTOPRAZOLE SODIUM
     Dosage: 40 MILLIGRAM DAILY;
  5. QUETIAPINE. [Interacting]
     Active Substance: QUETIAPINE
     Dosage: 750 MILLIGRAM DAILY;
  6. TORASEMID [Concomitant]
     Active Substance: TORSEMIDE
     Dosage: 5 MILLIGRAM DAILY;
  7. METOPROLOL. [Concomitant]
     Active Substance: METOPROLOL
     Dosage: 47.5 MILLIGRAM DAILY;
  8. TRILEPTAL [Interacting]
     Active Substance: OXCARBAZEPINE
     Dosage: 1200 MILLIGRAM DAILY;
  9. SIMVAGAMMA [Concomitant]
     Dosage: 40 MILLIGRAM DAILY;

REACTIONS (2)
  - Drug interaction [Recovered/Resolved with Sequelae]
  - Cardiac failure [Recovered/Resolved with Sequelae]
